FAERS Safety Report 4984867-4 (Version None)
Quarter: 2006Q2

REPORT INFORMATION
  Report Type: 
  Country: None (occurrence: None)
  Receive Date: 20060426
  Receipt Date: 20060426
  Transmission Date: 20061013
  Serious: Yes (Other)
  Sender: FDA-Public Use
  Company Number: None

PATIENT
  Sex: Male
  Weight: 68.0396 kg

DRUGS (2)
  1. FENTANYL [Suspect]
     Indication: BACK PAIN
     Dosage: 150MCG/HR   Q48    TRANSDERMAL
     Route: 062
     Dates: start: 20050101
  2. FENTANYL [Suspect]
     Indication: PAIN IN EXTREMITY
     Dosage: 150MCG/HR   Q48    TRANSDERMAL
     Route: 062
     Dates: start: 20050101

REACTIONS (3)
  - DRUG LEVEL CHANGED [None]
  - DRUG WITHDRAWAL SYNDROME [None]
  - PHARMACEUTICAL PRODUCT COMPLAINT [None]
